FAERS Safety Report 8857345 (Version 2)
Quarter: 2012Q4

REPORT INFORMATION
  Report Type: 
  Country: US (occurrence: US)
  Receive Date: 20121024
  Receipt Date: 20121203
  Transmission Date: 20130627
  Serious: No
  Sender: FDA-Public Use
  Company Number: US-BIOGENIDEC-2012BI045878

PATIENT
  Sex: Female

DRUGS (1)
  1. TYSABRI [Suspect]
     Indication: MULTIPLE SCLEROSIS
     Route: 042
     Dates: start: 20110913, end: 20121010

REACTIONS (5)
  - Secondary progressive multiple sclerosis [Unknown]
  - Balance disorder [Not Recovered/Not Resolved]
  - Pain in extremity [Not Recovered/Not Resolved]
  - Gait disturbance [Not Recovered/Not Resolved]
  - Drug ineffective [Not Recovered/Not Resolved]
